FAERS Safety Report 12831936 (Version 1)
Quarter: 2016Q4

REPORT INFORMATION
  Report Type: Report from Study
  Country: US (occurrence: US)
  Receive Date: 20161010
  Receipt Date: 20161010
  Transmission Date: 20170207
  Serious: Yes (Hospitalization, Other)
  Sender: FDA-Public Use
  Company Number: US-AMGEN-USASL2016137685

PATIENT
  Age: 84 Year
  Sex: Male

DRUGS (1)
  1. ENBREL [Suspect]
     Active Substance: ETANERCEPT
     Indication: PSORIATIC ARTHROPATHY
     Dosage: 50 MG, QWK
     Route: 065

REACTIONS (9)
  - Small intestinal obstruction [Recovered/Resolved]
  - Dysphonia [Unknown]
  - Hypersensitivity [Unknown]
  - Atrial fibrillation [Recovered/Resolved]
  - Drug dose omission [Unknown]
  - Arthritis [Unknown]
  - Dysphagia [Unknown]
  - Cholelithiasis [Not Recovered/Not Resolved]
  - Lung disorder [Unknown]

NARRATIVE: CASE EVENT DATE: 201605
